FAERS Safety Report 14897468 (Version 1)
Quarter: 2018Q2

REPORT INFORMATION
  Report Type: Spontaneous
  Country: US (occurrence: US)
  Receive Date: 20180427
  Receipt Date: 20180427
  Transmission Date: 20180711
  Serious: Yes (Hospitalization)
  Sender: FDA-Public Use
  Company Number: None

PATIENT
  Age: 68 Year
  Sex: Female

DRUGS (10)
  1. AMBIEN [Concomitant]
     Active Substance: ZOLPIDEM TARTRATE
     Dates: start: 20180214
  2. VALSART/HCTZ [Concomitant]
     Dates: start: 20160420
  3. ORENCIA [Suspect]
     Active Substance: ABATACEPT
     Indication: RHEUMATOID ARTHRITIS
     Route: 058
     Dates: start: 20161209
  4. VITAMIN D3 [Concomitant]
     Active Substance: CHOLECALCIFEROL
     Dates: start: 20160420
  5. ZYRTEC ALLGY [Concomitant]
     Dates: start: 20160420
  6. NEXIUM [Concomitant]
     Active Substance: ESOMEPRAZOLE MAGNESIUM
     Dates: start: 20160420
  7. VITAMIN B1 [Concomitant]
     Active Substance: THIAMINE HYDROCHLORIDE
     Dates: start: 20160420
  8. ZOLPIDEM [Concomitant]
     Active Substance: ZOLPIDEM\ZOLPIDEM TARTRATE
     Dates: start: 20160420
  9. ASPIRIN. [Concomitant]
     Active Substance: ASPIRIN
     Dates: start: 20161207
  10. PROBIOTIC [Concomitant]
     Active Substance: PROBIOTICS NOS
     Dates: start: 20170824

REACTIONS (3)
  - Depression [None]
  - Drug ineffective [None]
  - Rheumatoid arthritis [None]
